FAERS Safety Report 9912762 (Version 1)
Quarter: 2014Q1

REPORT INFORMATION
  Report Type: Spontaneous
  Country: US (occurrence: None)
  Receive Date: 20140218
  Receipt Date: 20140218
  Transmission Date: 20141002
  Serious: Yes (Life-Threatening, Hospitalization)
  Sender: FDA-Public Use
  Company Number: None

PATIENT
  Age: 83 Year
  Sex: Male
  Weight: 72.58 kg

DRUGS (1)
  1. BACTRIM [Suspect]
     Indication: PROSTATE INFECTION

REACTIONS (2)
  - Renal failure [None]
  - Dialysis [None]
